FAERS Safety Report 4715107-9 (Version None)
Quarter: 2005Q2

REPORT INFORMATION
  Report Type: 
  Country: None (occurrence: None)
  Receive Date: 20050630
  Receipt Date: 20050413
  Transmission Date: 20051028
  Serious: Yes (Other)
  Sender: FDA-Public Use
  Company Number: 213663

PATIENT
  Age: 58 Year
  Sex: Male

DRUGS (9)
  1. AVASTIN [Suspect]
     Indication: COLON CANCER METASTATIC
     Dosage: 450, INTRAVENOUS
     Route: 042
     Dates: start: 20040504
  2. FLUOROURACIL [Suspect]
     Indication: DRUG USE FOR UNKNOWN INDICATION
  3. LEUCOVORIN CALCIUM [Suspect]
     Indication: DRUG USE FOR UNKNOWN INDICATION
  4. ZOFRAN [Suspect]
     Indication: DRUG USE FOR UNKNOWN INDICATION
  5. SYNTHROID [Concomitant]
     Indication: DRUG USE FOR UNKNOWN INDICATION
  6. ZOCOR [Suspect]
     Indication: DRUG USE FOR UNKNOWN INDICATION
  7. DIOVAN HCT [Suspect]
     Indication: DRUG USE FOR UNKNOWN INDICATION
     Dosage: 160 MG
  8. DECADRON [Suspect]
     Indication: DRUG USE FOR UNKNOWN INDICATION
  9. OXALIPLATIN [Concomitant]

REACTIONS (1)
  - CEREBRAL INFARCTION [None]
